FAERS Safety Report 14344131 (Version 3)
Quarter: 2018Q2

REPORT INFORMATION
  Report Type: Report from Study
  Country: ES (occurrence: ES)
  Receive Date: 20180102
  Receipt Date: 20180404
  Transmission Date: 20180711
  Serious: Yes (Life-Threatening, Other)
  Sender: FDA-Public Use
  Company Number: ES-GILEAD-2017-0312692

PATIENT
  Age: 58 Year
  Sex: Male

DRUGS (6)
  1. SOFOSBUVIR [Suspect]
     Active Substance: SOFOSBUVIR
     Indication: HEPATITIS C VIRUS TEST POSITIVE
     Dosage: 400 MG, QD
     Route: 065
  2. SIMEPREVIR [Interacting]
     Active Substance: SIMEPREVIR
     Indication: HEPATITIS C
  3. RIBAVIRIN. [Interacting]
     Active Substance: RIBAVIRIN
     Indication: HEPATITIS C
  4. RIBAVIRIN. [Interacting]
     Active Substance: RIBAVIRIN
     Indication: HEPATITIS C VIRUS TEST POSITIVE
     Dosage: 800 MG, QD
     Route: 048
  5. SIMEPREVIR [Interacting]
     Active Substance: SIMEPREVIR
     Indication: HEPATITIS C VIRUS TEST POSITIVE
     Dosage: 150 MG, QD
     Route: 065
  6. SOFOSBUVIR [Interacting]
     Active Substance: SOFOSBUVIR
     Indication: HEPATITIS C

REACTIONS (8)
  - Drug interaction [Unknown]
  - Anaemia [Recovered/Resolved]
  - Herpes virus infection [Unknown]
  - Bone marrow failure [Unknown]
  - Agranulocytosis [Recovered/Resolved]
  - Haematotoxicity [Recovered/Resolved]
  - Pancytopenia [Recovered/Resolved]
  - Febrile neutropenia [Recovered/Resolved]
